FAERS Safety Report 11450093 (Version 1)
Quarter: 2015Q3

REPORT INFORMATION
  Report Type: Spontaneous
  Country: US (occurrence: US)
  Receive Date: 20150903
  Receipt Date: 20150903
  Transmission Date: 20151125
  Serious: No
  Sender: FDA-Public Use
  Company Number: US-ROCHE-1054842

PATIENT

DRUGS (3)
  1. PEGASYS [Suspect]
     Active Substance: PEGINTERFERON ALFA-2A
     Indication: PRODUCT USED FOR UNKNOWN INDICATION
     Route: 065
  2. COPEGUS [Concomitant]
     Active Substance: RIBAVIRIN
  3. INCIVEK [Concomitant]
     Active Substance: TELAPREVIR

REACTIONS (2)
  - Hepatic fibrosis [Unknown]
  - Platelet count decreased [Unknown]
